FAERS Safety Report 7564352-6 (Version None)
Quarter: 2011Q2

REPORT INFORMATION
  Report Type: 
  Country: None (occurrence: None)
  Receive Date: 20110622
  Receipt Date: 20110609
  Transmission Date: 20111010
  Serious: Yes (Hospitalization, Other)
  Sender: FDA-Public Use
  Company Number: PHHY2011BE48637

PATIENT
  Sex: Male

DRUGS (2)
  1. AFINITOR [Suspect]
     Indication: RENAL CELL CARCINOMA
     Dosage: 10 MG, UNK
  2. AFINITOR [Suspect]
     Dosage: 5 MG, UNK

REACTIONS (6)
  - BRONCHIAL OBSTRUCTION [None]
  - LUNG DISORDER [None]
  - NEUTROPHIL COUNT INCREASED [None]
  - BRONCHIAL NEOPLASM [None]
  - BRONCHITIS [None]
  - METASTASIS [None]
